FAERS Safety Report 4503568-X (Version None)
Quarter: 2004Q4

REPORT INFORMATION
  Report Type: 
  Country: None (occurrence: None)
  Receive Date: 20041112
  Receipt Date: 20041031
  Transmission Date: 20050328
  Serious: Yes (Other)
  Sender: FDA-Public Use
  Company Number: 2004243359EG

PATIENT
  Age: 60 Year
  Sex: Female

DRUGS (2)
  1. CELEBREX [Suspect]
     Indication: BACK PAIN
     Dosage: 200 MG, QD, ORAL
     Route: 048
     Dates: start: 20041013, end: 20041020
  2. ACE INHIBITOR NOS [Concomitant]

REACTIONS (5)
  - BLOOD CREATININE ABNORMAL [None]
  - BLOOD POTASSIUM INCREASED [None]
  - BLOOD URIC ACID ABNORMAL [None]
  - DISTURBANCE IN ATTENTION [None]
  - OLIGURIA [None]
